FAERS Safety Report 23281819 (Version 2)
Quarter: 2024Q1

REPORT INFORMATION
  Report Type: Report from Study
  Country: KR (occurrence: KR)
  Receive Date: 20231211
  Receipt Date: 20240209
  Transmission Date: 20240409
  Serious: Yes (Hospitalization)
  Sender: FDA-Public Use
  Company Number: KR-Eisai Medical Research-EC-2023-143933

PATIENT
  Age: 52 Year
  Sex: Female
  Weight: 57 kg

DRUGS (8)
  1. LENVIMA [Suspect]
     Active Substance: LENVATINIB
     Indication: Endometrial cancer
     Route: 048
     Dates: start: 20230613, end: 20230625
  2. LENVIMA [Suspect]
     Active Substance: LENVATINIB
     Route: 048
     Dates: start: 20230626, end: 20230629
  3. PEMBROLIZUMAB [Suspect]
     Active Substance: PEMBROLIZUMAB
     Indication: Endometrial cancer
     Dosage: FREQUENCY UNKNOWN
     Route: 042
     Dates: start: 20230613, end: 20230613
  4. DULASTIN [Concomitant]
     Indication: Colony stimulating factor therapy
     Route: 058
     Dates: start: 20210719
  5. PHAZYME COMPLEX [Concomitant]
     Indication: Dyspepsia
     Dosage: 1 TAB
     Route: 048
     Dates: start: 20230613
  6. MAGO [Concomitant]
     Indication: Constipation
     Route: 048
     Dates: start: 20230612
  7. CALCIUM POLYCARBOPHIL [Concomitant]
     Active Substance: CALCIUM POLYCARBOPHIL
     Indication: Irritable bowel syndrome
     Dosage: 2 TAB
     Route: 048
     Dates: start: 20230612
  8. MEGESIA [Concomitant]
     Indication: Decreased appetite
     Dosage: 1 TAB
     Route: 048
     Dates: start: 20230626

REACTIONS (3)
  - Intestinal perforation [Recovering/Resolving]
  - Flank pain [Recovered/Resolved]
  - Rash [Unknown]

NARRATIVE: CASE EVENT DATE: 20230614
